FAERS Safety Report 21155759 (Version 1)
Quarter: 2022Q3

REPORT INFORMATION
  Report Type: Spontaneous
  Country: PR (occurrence: PR)
  Receive Date: 20220801
  Receipt Date: 20220801
  Transmission Date: 20221027
  Serious: No
  Sender: FDA-Public Use
  Company Number: PR-PFIZER INC-202201013828

PATIENT
  Age: 18 Year
  Sex: Female
  Weight: 77.11 kg

DRUGS (1)
  1. GENOTROPIN [Suspect]
     Active Substance: SOMATROPIN
     Indication: Growth hormone deficiency
     Dosage: 2 MG, 1X/DAY (INJECTED NIGHTLY)
     Dates: start: 201903

REACTIONS (2)
  - Intentional dose omission [Recovered/Resolved]
  - Depression [Not Recovered/Not Resolved]
